FAERS Safety Report 7637982-0 (Version None)
Quarter: 2011Q3

REPORT INFORMATION
  Report Type: 
  Country: None (occurrence: None)
  Receive Date: 20110720
  Receipt Date: 20110714
  Transmission Date: 20111222
  Serious: Yes (Death)
  Sender: FDA-Public Use
  Company Number: 2011002041

PATIENT
  Age: 67 Year
  Sex: Male

DRUGS (2)
  1. TARCEVA [Suspect]
  2. TARCEVA [Suspect]
     Indication: LUNG CARCINOMA CELL TYPE UNSPECIFIED STAGE 0
     Dosage: 150 MG, UID/QD, ORAL, 150 MG, UID/QD, ORAL
     Route: 048
     Dates: start: 20110426

REACTIONS (10)
  - DISORIENTATION [None]
  - DECREASED APPETITE [None]
  - OEDEMA PERIPHERAL [None]
  - DYSPNOEA [None]
  - MUSCULAR WEAKNESS [None]
  - DEHYDRATION [None]
  - DRY SKIN [None]
  - BODY TEMPERATURE INCREASED [None]
  - DIARRHOEA [None]
  - FATIGUE [None]
